FAERS Safety Report 9861912 (Version 1)
Quarter: 2014Q1

REPORT INFORMATION
  Report Type: Spontaneous
  Country: IT (occurrence: IT)
  Receive Date: 20140203
  Receipt Date: 20140203
  Transmission Date: 20141002
  Serious: Yes (Hospitalization)
  Sender: FDA-Public Use
  Company Number: IT-JNJFOC-20140118207

PATIENT
  Age: 88 Year
  Sex: Female
  Weight: 80 kg

DRUGS (7)
  1. RIVAROXABAN [Suspect]
     Indication: PROPHYLAXIS
     Route: 048
     Dates: start: 20131109, end: 20131205
  2. NEBIVOLOL [Concomitant]
     Route: 048
  3. AMIODARONE [Concomitant]
     Route: 048
  4. SPIRONOLACTONE [Concomitant]
     Route: 048
  5. CEFTRIAXONE [Concomitant]
     Indication: ERYSIPELAS
     Route: 042
     Dates: start: 20131129, end: 20131204
  6. VANCOMYCIN [Concomitant]
     Route: 048
     Dates: start: 20131203, end: 20131213
  7. FUROSEMIDE [Concomitant]
     Route: 048

REACTIONS (2)
  - Haemorrhagic cerebral infarction [Recovering/Resolving]
  - Confusional state [Recovering/Resolving]
